FAERS Safety Report 18716873 (Version 1)
Quarter: 2021Q1

REPORT INFORMATION
  Report Type: Spontaneous
  Country: US (occurrence: US)
  Receive Date: 20210107
  Receipt Date: 20210107
  Transmission Date: 20210419
  Serious: Yes (Hospitalization)
  Sender: FDA-Public Use
  Company Number: None

PATIENT
  Age: 85 Year
  Sex: Male
  Weight: 60.7 kg

DRUGS (20)
  1. DEXAMETHASONE. [Concomitant]
     Active Substance: DEXAMETHASONE
  2. VITAMIN D2 [Concomitant]
     Active Substance: ERGOCALCIFEROL
  3. ACYCLOVIR. [Concomitant]
     Active Substance: ACYCLOVIR
  4. ASPIRIN. [Concomitant]
     Active Substance: ASPIRIN
  5. PANTOPRAZOLE [Concomitant]
     Active Substance: PANTOPRAZOLE
  6. SERTRALLINE [Concomitant]
  7. TAMSULOSIN [Concomitant]
     Active Substance: TAMSULOSIN
  8. DARATUMUMAB [Suspect]
     Active Substance: DARATUMUMAB
     Indication: PLASMA CELL MYELOMA
     Route: 058
     Dates: start: 20191028
  9. ATORVASTATIN (LIPITOR) 40MG TABLET [Concomitant]
  10. CYANOCOBALAMIN. [Concomitant]
     Active Substance: CYANOCOBALAMIN
  11. CHOLECALCIFEROL [Concomitant]
     Active Substance: CHOLECALCIFEROL
  12. CLOPIDOGREL [Concomitant]
     Active Substance: CLOPIDOGREL BISULFATE
  13. FENOFIBRATE. [Concomitant]
     Active Substance: FENOFIBRATE
  14. ZYRTEC [Concomitant]
     Active Substance: CETIRIZINE HYDROCHLORIDE
  15. CHOLECALCIFEROL [Concomitant]
     Active Substance: CHOLECALCIFEROL
  16. TUMERIC, BULK, MISC [Concomitant]
  17. XARELTO [Concomitant]
     Active Substance: RIVAROXABAN
  18. PHOSPHOROUS [Concomitant]
  19. LOVENOX [Concomitant]
     Active Substance: ENOXAPARIN SODIUM
  20. XARELTO [Concomitant]
     Active Substance: RIVAROXABAN

REACTIONS (5)
  - Haematemesis [None]
  - Melaena [None]
  - Anaemia [None]
  - Balance disorder [None]
  - Amnesia [None]

NARRATIVE: CASE EVENT DATE: 20210107
